FAERS Safety Report 17741296 (Version 1)
Quarter: 2020Q2

REPORT INFORMATION
  Report Type: Spontaneous
  Country: DZ (occurrence: DZ)
  Receive Date: 20200504
  Receipt Date: 20200504
  Transmission Date: 20200714
  Serious: Yes (Other)
  Sender: FDA-Public Use
  Company Number: NVSC2020DZ117098

PATIENT
  Age: 40 Year
  Sex: Female

DRUGS (1)
  1. TASIGNA [Suspect]
     Active Substance: NILOTINIB
     Indication: DRUG INTOLERANCE
     Dosage: 200 MG
     Route: 065
     Dates: start: 202001

REACTIONS (4)
  - Palpitations [Unknown]
  - Asthenia [Unknown]
  - Angina pectoris [Unknown]
  - Product use in unapproved indication [Unknown]
